FAERS Safety Report 5060748-5 (Version None)
Quarter: 2006Q3

REPORT INFORMATION
  Report Type: 
  Country: None (occurrence: None)
  Receive Date: 20060721
  Receipt Date: 20060721
  Transmission Date: 20061208
  Serious: Yes (Other)
  Sender: FDA-Public Use
  Company Number: None

PATIENT
  Sex: Male
  Weight: 65.7716 kg

DRUGS (2)
  1. LUPRON DEPOT-3 [Suspect]
     Indication: PROSTATECTOMY
     Dosage: 22.5 MG   EVERY 3 MONTH   030
     Dates: start: 20060125
  2. LUPRON DEPOT-3 [Suspect]
     Indication: PROSTATIC SPECIFIC ANTIGEN INCREASED
     Dosage: 22.5 MG   EVERY 3 MONTH   030
     Dates: start: 20060125

REACTIONS (2)
  - HAEMATURIA [None]
  - MEDICATION ERROR [None]
